FAERS Safety Report 21831148 (Version 1)
Quarter: 2023Q1

REPORT INFORMATION
  Report Type: Report from Study
  Country: US (occurrence: US)
  Receive Date: 20230106
  Receipt Date: 20230106
  Transmission Date: 20230418
  Serious: No
  Sender: FDA-Public Use
  Company Number: US-ABBVIE-4230344

PATIENT
  Sex: Female

DRUGS (3)
  1. SKYRIZI [Suspect]
     Active Substance: RISANKIZUMAB-RZAA
     Indication: Crohn^s disease
     Dosage: FIRST ADMINISTRATION DOSE DATE :2022
     Route: 058
  2. SKYRIZI [Suspect]
     Active Substance: RISANKIZUMAB-RZAA
     Indication: Crohn^s disease
     Dosage: LAST ADMINISTRATION DOSE DATE: 2022
     Route: 042
     Dates: start: 20221115
  3. AUGMENTIN [Concomitant]
     Active Substance: AMOXICILLIN\CLAVULANATE POTASSIUM
     Indication: Product used for unknown indication

REACTIONS (6)
  - Sinus congestion [Recovering/Resolving]
  - Paranasal sinus hypersecretion [Recovering/Resolving]
  - Diarrhoea [Recovered/Resolved]
  - Cough [Recovered/Resolved]
  - Noninfective myringitis [Recovering/Resolving]
  - Nasopharyngitis [Recovered/Resolved]
